FAERS Safety Report 8020398-5 (Version None)
Quarter: 2012Q1

REPORT INFORMATION
  Report Type: 
  Country: None (occurrence: None)
  Receive Date: 20120103
  Receipt Date: 20111221
  Transmission Date: 20120608
  Serious: Yes (Other)
  Sender: FDA-Public Use
  Company Number: US-ELI_LILLY_AND_COMPANY-US201107004326

PATIENT
  Sex: Female
  Weight: 76.644 kg

DRUGS (9)
  1. CALCIUM ACETATE [Concomitant]
     Dosage: 1 DF, BID
  2. VITAMIN C [Concomitant]
     Dosage: 1 DF, QD
     Route: 048
  3. FORTEO [Suspect]
     Dosage: 20 UG, QD
     Route: 058
  4. NAPROXEN (ALEVE) [Concomitant]
     Dosage: 2 DF, QD
     Route: 048
  5. CENTRUM                            /00554501/ [Concomitant]
     Dosage: 1 DF, QD
     Route: 048
  6. FORTEO [Suspect]
     Indication: OSTEOPOROSIS
     Dosage: 20 UG, QD
     Route: 058
  7. LEVOTHYROXINE SODIUM [Concomitant]
     Dosage: 1 DF, QD
     Route: 048
  8. FORTEO [Suspect]
     Dosage: 20 UG, QD
     Route: 058
  9. VITAMIN D [Concomitant]
     Dosage: 1 DF, QD
     Route: 048

REACTIONS (10)
  - ABDOMINAL DISTENSION [None]
  - SKIN CANCER [None]
  - JOINT SWELLING [None]
  - INJECTION SITE HAEMATOMA [None]
  - VOMITING [None]
  - MUSCLE SPASMS [None]
  - WEIGHT INCREASED [None]
  - INSOMNIA [None]
  - ABDOMINAL PAIN UPPER [None]
  - NAUSEA [None]
